FAERS Safety Report 21254675 (Version 4)
Quarter: 2022Q4

REPORT INFORMATION
  Report Type: Spontaneous
  Country: US (occurrence: US)
  Receive Date: 20220825
  Receipt Date: 20221205
  Transmission Date: 20230113
  Serious: No
  Sender: FDA-Public Use
  Company Number: US-PFIZER INC-202201045508

PATIENT
  Age: 62 Year
  Sex: Female
  Weight: 71.67 kg

DRUGS (1)
  1. ESTRING [Suspect]
     Active Substance: ESTRADIOL
     Indication: Atrophic vulvovaginitis
     Dosage: 2 MG (2MG EVERY 90 DAYS)
     Dates: start: 20220801

REACTIONS (2)
  - Discomfort [Unknown]
  - Device issue [Unknown]

NARRATIVE: CASE EVENT DATE: 20220801
